FAERS Safety Report 4476216-5 (Version None)
Quarter: 2004Q3

REPORT INFORMATION
  Report Type: 
  Country: None (occurrence: None)
  Receive Date: 20040923
  Receipt Date: 20040730
  Transmission Date: 20050211
  Serious: No
  Sender: FDA-Public Use
  Company Number: USA040874156

PATIENT
  Age: 75 Year
  Sex: Female

DRUGS (3)
  1. FORTEO [Suspect]
     Indication: OSTEOPOROSIS
     Dates: start: 20030501
  2. CALCIUM [Concomitant]
  3. ASPIRIN [Concomitant]

REACTIONS (2)
  - BLOOD CALCIUM INCREASED [None]
  - BLOOD CHOLESTEROL INCREASED [None]
